FAERS Safety Report 19895935 (Version 1)
Quarter: 2021Q3

REPORT INFORMATION
  Report Type: Spontaneous
  Country: FR (occurrence: FR)
  Receive Date: 20210929
  Receipt Date: 20210929
  Transmission Date: 20211014
  Serious: Yes (Hospitalization)
  Sender: FDA-Public Use
  Company Number: FR-MYLANLABS-2021M1065875

PATIENT
  Age: 22 Year
  Sex: Male

DRUGS (1)
  1. LEPONEX 100 MG [Suspect]
     Active Substance: CLOZAPINE
     Indication: MENTAL DISORDER
     Dosage: 3 CP OF 100 MG INSTEAD OF 3 CP OF 25 MG
     Route: 048
     Dates: start: 20210427, end: 20210427

REACTIONS (3)
  - Dystonia [Recovered/Resolved]
  - Incorrect dosage administered [Recovered/Resolved]
  - Product dosage form confusion [Recovered/Resolved]

NARRATIVE: CASE EVENT DATE: 20210427
